FAERS Safety Report 21543480 (Version 1)
Quarter: 2022Q4

REPORT INFORMATION
  Report Type: Spontaneous
  Country: CN (occurrence: None)
  Receive Date: 20221102
  Receipt Date: 20221102
  Transmission Date: 20230112
  Serious: Yes (Other)
  Sender: FDA-Public Use
  Company Number: 2022A358354

PATIENT
  Age: 49 Year
  Sex: Male

DRUGS (3)
  1. OSIMERTINIB [Suspect]
     Active Substance: OSIMERTINIB
     Indication: Lung adenocarcinoma stage III
     Route: 048
  2. OSIMERTINIB [Suspect]
     Active Substance: OSIMERTINIB
     Indication: EGFR gene mutation
     Route: 048
  3. GEFITINIB [Concomitant]
     Active Substance: GEFITINIB
     Dates: end: 201905

REACTIONS (4)
  - Drug resistance [Unknown]
  - Metastases to liver [Unknown]
  - EGFR gene mutation [Unknown]
  - Malignant neoplasm progression [Unknown]
